FAERS Safety Report 16662597 (Version 2)
Quarter: 2020Q1

REPORT INFORMATION
  Report Type: Report from Study
  Country: US (occurrence: US)
  Receive Date: 20190802
  Receipt Date: 20200129
  Transmission Date: 20200409
  Serious: No
  Sender: FDA-Public Use
  Company Number: US-EXELIXIS-CABO-19018885

PATIENT
  Sex: Male
  Weight: 57.14 kg

DRUGS (1)
  1. CABOMETYX [Suspect]
     Active Substance: CABOZANTINIB S-MALATE
     Indication: RENAL CELL CARCINOMA
     Dosage: UNK
     Dates: start: 201809

REACTIONS (11)
  - Decreased appetite [Unknown]
  - Paraesthesia [Unknown]
  - Gingival bleeding [Unknown]
  - Alopecia [Unknown]
  - Weight decreased [Unknown]
  - Hair colour changes [Unknown]
  - Pain [Unknown]
  - Taste disorder [Unknown]
  - Malignant neoplasm progression [Unknown]
  - Anxiety [Unknown]
  - Constipation [Unknown]
